FAERS Safety Report 12926518 (Version 1)
Quarter: 2016Q4

REPORT INFORMATION
  Report Type: Spontaneous
  Country: GB (occurrence: GB)
  Receive Date: 20161109
  Receipt Date: 20161109
  Transmission Date: 20170207
  Serious: Yes (Hospitalization)
  Sender: FDA-Public Use
  Company Number: GB-TEVA-709734ACC

PATIENT
  Sex: Female

DRUGS (16)
  1. BUMETANIDE. [Concomitant]
     Active Substance: BUMETANIDE
  2. RANITIDINE. [Concomitant]
     Active Substance: RANITIDINE
  3. DOCUSATE [Concomitant]
     Active Substance: DOCUSATE
  4. FERROUS SULFATE. [Concomitant]
     Active Substance: FERROUS SULFATE
  5. HYDROMOL EMOLLIENT [Concomitant]
  6. SALBUTAMOL [Concomitant]
     Active Substance: ALBUTEROL
  7. CODEINE [Suspect]
     Active Substance: CODEINE
     Indication: PAIN
     Dosage: 30MG FOUR TIMES A DAY AND 30MG FOUR TIMES A DAY WHEN REQUIRED.
     Route: 048
  8. PARACETAMOL [Concomitant]
     Active Substance: ACETAMINOPHEN
  9. RAMIPRIL. [Concomitant]
     Active Substance: RAMIPRIL
  10. SERETIDE [Concomitant]
     Active Substance: FLUTICASONE PROPIONATE\SALMETEROL XINAFOATE
  11. TOLTERODINE [Concomitant]
     Active Substance: TOLTERODINE
  12. WARFARIN [Concomitant]
     Active Substance: WARFARIN
  13. GABAPENTIN. [Suspect]
     Active Substance: GABAPENTIN
     Indication: PAIN
     Dosage: 300 MILLIGRAM DAILY;
     Route: 048
  14. BISOPROLOL [Concomitant]
     Active Substance: BISOPROLOL
  15. EVACAL D3 CHEWABLE [Concomitant]
  16. PREDNISOLONE. [Concomitant]
     Active Substance: PREDNISOLONE

REACTIONS (1)
  - Confusional state [Recovering/Resolving]
